FAERS Safety Report 4524126-7 (Version None)
Quarter: 2005Q1

REPORT INFORMATION
  Report Type: 
  Country: None (occurrence: None)
  Receive Date: 20041119
  Receipt Date: 20040724
  Transmission Date: 20050727
  Serious: No
  Sender: FDA-Public Use
  Company Number: PHEH2004US08062

PATIENT
  Sex: Female

DRUGS (2)
  1. ZELNORM [Suspect]
  2. EFFEXOR [Suspect]
     Indication: BIPOLAR I DISORDER

REACTIONS (2)
  - ANXIETY [None]
  - DRUG INTERACTION [None]
